FAERS Safety Report 11311002 (Version 3)
Quarter: 2015Q3

REPORT INFORMATION
  Report Type: Spontaneous
  Country: US (occurrence: US)
  Receive Date: 20150727
  Receipt Date: 20150823
  Transmission Date: 20151125
  Serious: No
  Sender: FDA-Public Use
  Company Number: US-AMGEN-USASP2015070611

PATIENT
  Age: 36 Year
  Sex: Female
  Weight: 64.4 kg

DRUGS (2)
  1. ENBREL [Suspect]
     Active Substance: ETANERCEPT
     Indication: PSORIASIS
  2. ENBREL [Suspect]
     Active Substance: ETANERCEPT
     Indication: PSORIATIC ARTHROPATHY
     Dosage: 50 MG, QWEEK
     Route: 058
     Dates: start: 20150703

REACTIONS (7)
  - Fatigue [Unknown]
  - Influenza like illness [Unknown]
  - Injection site erythema [Unknown]
  - Injection site swelling [Unknown]
  - Injection site bruising [Unknown]
  - Sluggishness [Unknown]
  - Injection site reaction [Recovering/Resolving]

NARRATIVE: CASE EVENT DATE: 201507
